FAERS Safety Report 7421144-6 (Version None)
Quarter: 2011Q2

REPORT INFORMATION
  Report Type: 
  Country: None (occurrence: None)
  Receive Date: 20110418
  Receipt Date: 20110407
  Transmission Date: 20111010
  Serious: Yes (Other)
  Sender: FDA-Public Use
  Company Number: CN-ASTRAZENECA-2011SE19777

PATIENT
  Age: 72 Year
  Sex: Female
  Weight: 70 kg

DRUGS (2)
  1. NIMODIPINE [Concomitant]
     Indication: HYPERTENSION
     Dates: end: 20110405
  2. NEXIUM [Suspect]
     Indication: GASTRIC ULCER
     Route: 048
     Dates: start: 20110318

REACTIONS (3)
  - GENERALISED OEDEMA [None]
  - PRURITUS GENERALISED [None]
  - SYNCOPE [None]
